FAERS Safety Report 6240947-7 (Version None)
Quarter: 2009Q2

REPORT INFORMATION
  Report Type: 
  Country: None (occurrence: None)
  Receive Date: 20090623
  Receipt Date: 20090616
  Transmission Date: 20091009
  Serious: Yes (Hospitalization)
  Sender: FDA-Public Use
  Company Number: FR-ASTRAZENECA-2009CG01254

PATIENT
  Age: 26769 Day
  Sex: Female

DRUGS (4)
  1. HYTACAND [Suspect]
     Indication: HYPERTENSION
     Route: 048
     Dates: end: 20090512
  2. MEDIATOR [Suspect]
     Route: 048
  3. DIAMICRON [Suspect]
     Indication: TYPE 2 DIABETES MELLITUS
     Route: 048
  4. ACTOS [Suspect]
     Indication: TYPE 2 DIABETES MELLITUS
     Route: 048

REACTIONS (3)
  - DIZZINESS POSTURAL [None]
  - HEADACHE [None]
  - HYPONATRAEMIA [None]
